FAERS Safety Report 6780088-3 (Version None)
Quarter: 2010Q2

REPORT INFORMATION
  Report Type: 
  Country: None (occurrence: None)
  Receive Date: 20100618
  Receipt Date: 20100617
  Transmission Date: 20101027
  Serious: Yes (Other)
  Sender: FDA-Public Use
  Company Number: US-B.I. PHARMACEUTICALS,INC./RIDGEFIELD-2010-BP-06265BP

PATIENT
  Age: 80 Year
  Sex: Female
  Weight: 43.54 kg

DRUGS (6)
  1. TWYNSTA [Suspect]
     Indication: HYPERTENSION
     Dates: start: 20091223, end: 20100601
  2. LASIX [Concomitant]
  3. PLAVIX [Concomitant]
     Dosage: 75 MG
  4. NEXIUM [Concomitant]
     Dosage: 40 MG
  5. ATIVAN [Concomitant]
     Dosage: 1 MG
  6. PREMARIN [Concomitant]
     Dosage: 1.25 G

REACTIONS (1)
  - ANGIOEDEMA [None]
